FAERS Safety Report 9895138 (Version 1)
Quarter: 2014Q1

REPORT INFORMATION
  Report Type: Spontaneous
  Country: US (occurrence: US)
  Receive Date: 20140213
  Receipt Date: 20140213
  Transmission Date: 20141002
  Serious: No
  Sender: FDA-Public Use
  Company Number: US-BRISTOL-MYERS SQUIBB COMPANY-18906768

PATIENT
  Age: 52 Year
  Sex: Female
  Weight: 79.36 kg

DRUGS (5)
  1. ABATACEPT SUBQ INJECTION 125MG/ML [Suspect]
     Indication: RHEUMATOID ARTHRITIS
     Dosage: RECENT DOSE 13MAY2013
     Route: 058
  2. ARAVA [Concomitant]
  3. SULFASALAZINE [Concomitant]
  4. FOLIC ACID [Concomitant]
  5. CELEBREX [Concomitant]

REACTIONS (4)
  - Alopecia areata [Unknown]
  - Joint swelling [Unknown]
  - Gait disturbance [Unknown]
  - Incorrect product storage [Unknown]
